FAERS Safety Report 4898767-1 (Version None)
Quarter: 2006Q1

REPORT INFORMATION
  Report Type: 
  Country: None (occurrence: None)
  Receive Date: 20060202
  Receipt Date: 20060118
  Transmission Date: 20060701
  Serious: Yes (Other)
  Sender: FDA-Public Use
  Company Number: SEWYE322723JAN06

PATIENT
  Sex: Male

DRUGS (2)
  1. ENBREL [Suspect]
     Indication: JUVENILE ARTHRITIS
     Route: 058
     Dates: start: 20040219
  2. METHOTREXATE [Concomitant]
     Route: 048

REACTIONS (2)
  - FACIAL PALSY [None]
  - HERPES ZOSTER [None]
